FAERS Safety Report 6176115-7 (Version None)
Quarter: 2009Q2

REPORT INFORMATION
  Report Type: 
  Country: None (occurrence: None)
  Receive Date: 20090501
  Receipt Date: 20090417
  Transmission Date: 20091009
  Serious: Yes (Other)
  Sender: FDA-Public Use
  Company Number: DE-GENENTECH-277954

PATIENT
  Age: 60 Year
  Sex: Female

DRUGS (1)
  1. OMALIZUMAB [Suspect]
     Indication: HYPERSENSITIVITY
     Dosage: 300 MG, Q4W
     Route: 058
     Dates: start: 20090115

REACTIONS (1)
  - DIABETES MELLITUS [None]
